FAERS Safety Report 13735092 (Version 1)
Quarter: 2017Q3

REPORT INFORMATION
  Report Type: Spontaneous
  Country: US (occurrence: US)
  Receive Date: 20170710
  Receipt Date: 20170710
  Transmission Date: 20171127
  Serious: No
  Sender: FDA-Public Use
  Company Number: US-THE MEDICINES COMPANY-US-MDCO-16-00462

PATIENT
  Age: 68 Year
  Sex: Male

DRUGS (2)
  1. IONSYS [Suspect]
     Active Substance: FENTANYL HYDROCHLORIDE
     Indication: PRODUCT USED FOR UNKNOWN INDICATION
     Dosage: NOT REPORTED
  2. IONSYS [Suspect]
     Active Substance: FENTANYL HYDROCHLORIDE
     Dosage: NOT REPORTED

REACTIONS (3)
  - Application site burn [Not Recovered/Not Resolved]
  - Blister [Not Recovered/Not Resolved]
  - Skin exfoliation [Not Recovered/Not Resolved]
